FAERS Safety Report 23748563 (Version 1)
Quarter: 2024Q2

REPORT INFORMATION
  Report Type: Spontaneous
  Country: PT (occurrence: PT)
  Receive Date: 20240416
  Receipt Date: 20240416
  Transmission Date: 20240715
  Serious: Yes (Other)
  Sender: FDA-Public Use
  Company Number: None

PATIENT
  Age: 28 Year
  Sex: Female
  Weight: 68 kg

DRUGS (1)
  1. AMOXICILLIN\CLAVULANIC ACID [Suspect]
     Active Substance: AMOXICILLIN\CLAVULANIC ACID
     Indication: Tonsillitis bacterial
     Dosage: 1 CP 12/12, AMOXICILINA + ?CIDO CLAVUL?NICO
     Route: 048
     Dates: start: 20130227, end: 20130301

REACTIONS (3)
  - Lip erythema [Recovered/Resolved]
  - Erythema of eyelid [Recovered/Resolved]
  - Face oedema [Recovered/Resolved]

NARRATIVE: CASE EVENT DATE: 20130301
